FAERS Safety Report 8946884 (Version 1)
Quarter: 2012Q4

REPORT INFORMATION
  Report Type: 
  Country: CA (occurrence: CA)
  Receive Date: 20121205
  Receipt Date: 20121205
  Transmission Date: 20130627
  Serious: Yes (Death)
  Sender: FDA-Public Use
  Company Number: CA-GILEAD-2012-0065798

PATIENT
  Age: 48 Year
  Sex: Female

DRUGS (10)
  1. AMBRISENTAN [Suspect]
     Indication: PULMONARY HYPERTENSION
     Dosage: 5MG Per day
     Route: 048
     Dates: start: 20121122
  2. REVATIO [Concomitant]
  3. REMODULIN [Concomitant]
     Route: 058
  4. TYLENOL ARTHRITIS [Concomitant]
  5. LOSEC                              /00661201/ [Concomitant]
  6. OXYGEN [Concomitant]
  7. CALCIUM [Concomitant]
  8. MAGNESIUM [Concomitant]
  9. ZINC [Concomitant]
  10. MULTIVITAMIN                       /00097801/ [Concomitant]

REACTIONS (1)
  - Dyspnoea [Fatal]
